FAERS Safety Report 23745147 (Version 2)
Quarter: 2024Q2

REPORT INFORMATION
  Report Type: Report from Study
  Country: NL (occurrence: NL)
  Receive Date: 20240416
  Receipt Date: 20240422
  Transmission Date: 20240716
  Serious: Yes (Hospitalization)
  Sender: FDA-Public Use
  Company Number: NL-JNJFOC-20231249761

PATIENT
  Age: 85 Year
  Sex: Male
  Weight: 71 kg

DRUGS (4)
  1. DARATUMUMAB [Suspect]
     Active Substance: DARATUMUMAB
     Indication: Plasma cell myeloma
     Dosage: 15 ML
     Route: 058
     Dates: start: 20231201, end: 20231201
  2. DARATUMUMAB [Suspect]
     Active Substance: DARATUMUMAB
     Dosage: 15 ML
     Route: 058
     Dates: start: 20231208, end: 20231208
  3. DARATUMUMAB [Suspect]
     Active Substance: DARATUMUMAB
     Dosage: 15 ML
     Route: 058
     Dates: start: 20231222, end: 20231222
  4. LENALIDOMIDE [Suspect]
     Active Substance: LENALIDOMIDE
     Indication: Plasma cell myeloma
     Route: 065
     Dates: end: 20231212

REACTIONS (2)
  - Pyrexia [Recovered/Resolved]
  - COVID-19 [Recovered/Resolved]

NARRATIVE: CASE EVENT DATE: 20231201
